FAERS Safety Report 8311483-9 (Version None)
Quarter: 2012Q2

REPORT INFORMATION
  Report Type: 
  Country: None (occurrence: None)
  Receive Date: 20120423
  Receipt Date: 20120416
  Transmission Date: 20120825
  Serious: Yes (Other)
  Sender: FDA-Public Use
  Company Number: US-1191619

PATIENT
  Age: 87 Year
  Sex: Male

DRUGS (1)
  1. TRAVATAN [Suspect]
     Indication: OPEN ANGLE GLAUCOMA
     Dosage: (OPHTHALMIC)
     Route: 047

REACTIONS (1)
  - BRADYCARDIA [None]
